FAERS Safety Report 4398192-6 (Version None)
Quarter: 2004Q3

REPORT INFORMATION
  Report Type: 
  Country: None (occurrence: None)
  Receive Date: 20040714
  Receipt Date: 20040714
  Transmission Date: 20050211
  Serious: Yes (Hospitalization)
  Sender: FDA-Public Use
  Company Number: None

PATIENT
  Age: 79 Year
  Sex: Female
  Weight: 65.2 kg

DRUGS (6)
  1. IRESSA [Suspect]
     Indication: COLORECTAL CANCER METASTATIC
     Dosage: 250 MG PO DAILY
     Route: 048
     Dates: start: 20031205, end: 20040618
  2. DTO [Concomitant]
  3. VICODIN [Concomitant]
  4. IRINOTECAN [Concomitant]
  5. LEUCOVORIN CALCIUM [Concomitant]
  6. FLUOROURACIL [Concomitant]

REACTIONS (2)
  - PERFORATED ULCER [None]
  - PYREXIA [None]
